FAERS Safety Report 13777168 (Version 4)
Quarter: 2019Q3

REPORT INFORMATION
  Report Type: Report from Study
  Country: None (occurrence: AR)
  Receive Date: 20170720
  Receipt Date: 20190909
  Transmission Date: 20191004
  Serious: Yes (Hospitalization, Other)
  Sender: FDA-Public Use
  Company Number: AR-ABBVIE-17K-007-2046509-00

PATIENT
  Sex: Male

DRUGS (1)
  1. HUMIRA [Suspect]
     Active Substance: ADALIMUMAB
     Indication: ANKYLOSING SPONDYLITIS
     Route: 058
     Dates: start: 20160818, end: 20170512

REACTIONS (2)
  - Anaemia [Not Recovered/Not Resolved]
  - Red blood cell abnormality [Not Recovered/Not Resolved]

NARRATIVE: CASE EVENT DATE: 2017
